FAERS Safety Report 9789849 (Version 1)
Quarter: 2013Q4

REPORT INFORMATION
  Report Type: Spontaneous
  Country: US (occurrence: None)
  Receive Date: 20131230
  Receipt Date: 20131230
  Transmission Date: 20140711
  Serious: Yes (Hospitalization, Disabling, Other)
  Sender: FDA-Public Use
  Company Number: None

PATIENT
  Age: 50 Year
  Sex: Male
  Weight: 100.7 kg

DRUGS (1)
  1. LARIAM [Suspect]
     Indication: MALARIA PROPHYLAXIS
     Dosage: 1 PILL
     Route: 048

REACTIONS (21)
  - Depression [None]
  - Mood swings [None]
  - Paralysis [None]
  - Aphasia [None]
  - Multiple sclerosis [None]
  - Wheelchair user [None]
  - Acute disseminated encephalomyelitis [None]
  - Impaired driving ability [None]
  - Dizziness [None]
  - Dysgraphia [None]
  - Mental disorder [None]
  - Weight fluctuation [None]
  - Poor quality sleep [None]
  - Fall [None]
  - Joint injury [None]
  - Disturbance in attention [None]
  - Amnesia [None]
  - Suicidal ideation [None]
  - Hallucination [None]
  - Vertigo [None]
  - Aggression [None]
